FAERS Safety Report 7080661-1 (Version None)
Quarter: 2010Q4

REPORT INFORMATION
  Report Type: 
  Country: None (occurrence: None)
  Receive Date: 20101103
  Receipt Date: 20101004
  Transmission Date: 20110411
  Serious: No
  Sender: FDA-Public Use
  Company Number: US-TYCO HEALTHCARE/MALLINCKRODT-T201002080

PATIENT
  Sex: Female

DRUGS (6)
  1. FENTANYL CITRATE [Suspect]
     Indication: BACK PAIN
     Dosage: 6 TO 7, QD
     Route: 048
     Dates: start: 20100801
  2. FENTANYL CITRATE [Suspect]
     Indication: PAIN IN EXTREMITY
  3. SLEEP AID                          /01041702/ [Concomitant]
     Route: 048
  4. MUSCLE RELAXANTS [Concomitant]
     Route: 048
  5. ANTIHYPERTENSIVES [Concomitant]
     Route: 048
  6. METFORMIN [Concomitant]
     Indication: DIABETES MELLITUS
     Route: 048

REACTIONS (2)
  - DRUG ADMINISTRATION ERROR [None]
  - DRUG INEFFECTIVE [None]
